FAERS Safety Report 5196966-5 (Version None)
Quarter: 2006Q4

REPORT INFORMATION
  Report Type: 
  Country: None (occurrence: None)
  Receive Date: 20061227
  Receipt Date: 20061214
  Transmission Date: 20070319
  Serious: Yes (Hospitalization)
  Sender: FDA-Public Use
  Company Number: 2006154829

PATIENT
  Sex: Female

DRUGS (5)
  1. VIRACEPT [Suspect]
     Indication: HIV INFECTION
     Dosage: 250 MG, ORAL
     Route: 048
  2. BACTRIM [Suspect]
     Dosage: ORAL
     Route: 048
  3. RETROVIR [Suspect]
     Indication: HIV INFECTION
     Dosage: INTRAVENOUS
     Route: 042
  4. ZERIT [Suspect]
     Indication: HIV INFECTION
  5. EPIVIR [Suspect]
     Indication: HIV INFECTION
     Dosage: ORAL
     Route: 048

REACTIONS (2)
  - DRUG EXPOSURE DURING PREGNANCY [None]
  - LIPASE INCREASED [None]
